FAERS Safety Report 11237398 (Version 2)
Quarter: 2015Q3

REPORT INFORMATION
  Report Type: Report from Study
  Country: US (occurrence: US)
  Receive Date: 20150703
  Receipt Date: 20150903
  Transmission Date: 20151125
  Serious: Yes (Other)
  Sender: FDA-Public Use
  Company Number: US-SA-2015SA095403

PATIENT
  Age: 33 Year
  Sex: Female

DRUGS (1)
  1. FABRAZYME [Suspect]
     Active Substance: AGALSIDASE BETA
     Indication: FABRY^S DISEASE
     Route: 041
     Dates: start: 20150320

REACTIONS (2)
  - Pain [Unknown]
  - Cervix carcinoma [Not Recovered/Not Resolved]

NARRATIVE: CASE EVENT DATE: 20150826
